FAERS Safety Report 21859834 (Version 1)
Quarter: 2023Q1

REPORT INFORMATION
  Report Type: Spontaneous
  Country: US (occurrence: None)
  Receive Date: 20230112
  Receipt Date: 20230112
  Transmission Date: 20230418
  Serious: No
  Sender: FDA-Public Use
  Company Number: None

PATIENT
  Age: 71 Year
  Sex: Male

DRUGS (3)
  1. ERIVEDGE [Suspect]
     Active Substance: VISMODEGIB
     Indication: Basal cell carcinoma
     Dosage: OTHER QUANTITY : TAKE 1 CAPSULE;?FREQUENCY : DAILY;?
     Route: 048
     Dates: start: 202208
  2. ERIVEDGE [Suspect]
     Active Substance: VISMODEGIB
     Indication: External ear neoplasm malignant
  3. ERIVEDGE [Suspect]
     Active Substance: VISMODEGIB
     Indication: Skin cancer

REACTIONS (2)
  - Behaviour disorder [None]
  - COVID-19 [None]
